FAERS Safety Report 13398617 (Version 3)
Quarter: 2019Q3

REPORT INFORMATION
  Report Type: Report from Study
  Country: US (occurrence: US)
  Receive Date: 20170403
  Receipt Date: 20190705
  Transmission Date: 20191004
  Serious: Yes (Hospitalization)
  Sender: FDA-Public Use
  Company Number: US-BIOGEN-2017BI00379965

PATIENT
  Age: 51 Year
  Sex: Female
  Weight: 73.9 kg

DRUGS (55)
  1. TECFIDERA [Suspect]
     Active Substance: DIMETHYL FUMARATE
     Dosage: STARTING DOSE
     Route: 048
     Dates: start: 20170227, end: 20170306
  2. VALIUM [Concomitant]
     Active Substance: DIAZEPAM
     Dosage: 1 MG AM, 1MG PM, 2 MG EVENING
     Route: 048
  3. MOBIC [Concomitant]
     Active Substance: MELOXICAM
     Dosage: 1 MG AM, 1MG PM, 2 MG EVENING
     Route: 048
  4. ZOFRAN [Concomitant]
     Active Substance: ONDANSETRON HYDROCHLORIDE
     Dosage: 1 MG AM, 1MG PM, 2 MG EVENING
     Route: 048
  5. DITROPAN [Concomitant]
     Active Substance: OXYBUTYNIN CHLORIDE
     Dosage: 1 MG AM, 1MG PM, 2 MG EVENING
     Route: 048
  6. EFFEXOR XR [Concomitant]
     Active Substance: VENLAFAXINE HYDROCHLORIDE
     Dosage: 1 MG AM, 1MG PM, 2 MG EVENING
     Route: 048
  7. EFFEXOR XR [Concomitant]
     Active Substance: VENLAFAXINE HYDROCHLORIDE
     Dosage: 1 MG AM, 1MG PM, 2 MG EVENING
     Route: 048
  8. VALIUM [Concomitant]
     Active Substance: DIAZEPAM
     Indication: PRODUCT USED FOR UNKNOWN INDICATION
     Dosage: 1 MG AM, 1MG PM, 2 MG EVENING
     Route: 048
  9. VALIUM [Concomitant]
     Active Substance: DIAZEPAM
     Dosage: 1 MG AM, 1MG PM, 2 MG EVENING
     Route: 048
  10. VALIUM [Concomitant]
     Active Substance: DIAZEPAM
     Dosage: 1 MG AM, 1MG PM, 2 MG EVENING
     Route: 048
  11. NEURONTIN [Concomitant]
     Active Substance: GABAPENTIN
     Indication: PRODUCT USED FOR UNKNOWN INDICATION
     Route: 048
  12. MOBIC [Concomitant]
     Active Substance: MELOXICAM
     Dosage: 1 MG AM, 1MG PM, 2 MG EVENING
     Route: 048
  13. DITROPAN [Concomitant]
     Active Substance: OXYBUTYNIN CHLORIDE
     Dosage: 1 MG AM, 1MG PM, 2 MG EVENING
     Route: 048
  14. DITROPAN [Concomitant]
     Active Substance: OXYBUTYNIN CHLORIDE
     Dosage: 1 MG AM, 1MG PM, 2 MG EVENING
     Route: 048
  15. EFFEXOR XR [Concomitant]
     Active Substance: VENLAFAXINE HYDROCHLORIDE
     Dosage: 1 MG AM, 1MG PM, 2 MG EVENING
     Route: 048
  16. METHYLPREDNISOLONE. [Concomitant]
     Active Substance: METHYLPREDNISOLONE
     Indication: PRODUCT USED FOR UNKNOWN INDICATION
     Dosage: IVP
     Route: 065
  17. VALIUM [Concomitant]
     Active Substance: DIAZEPAM
     Dosage: 1 MG AM, 1MG PM, 2 MG EVENING
     Route: 048
  18. ZOFRAN [Concomitant]
     Active Substance: ONDANSETRON HYDROCHLORIDE
     Dosage: 1 MG AM, 1MG PM, 2 MG EVENING
     Route: 048
  19. DITROPAN [Concomitant]
     Active Substance: OXYBUTYNIN CHLORIDE
     Indication: PRODUCT USED FOR UNKNOWN INDICATION
     Dosage: PRN
     Route: 048
  20. ROXICODONE [Concomitant]
     Active Substance: OXYCODONE HYDROCHLORIDE
     Indication: PAIN
     Dosage: PRN
     Route: 048
  21. ROXICODONE [Concomitant]
     Active Substance: OXYCODONE HYDROCHLORIDE
     Dosage: 1 MG AM, 1MG PM, 2 MG EVENING
     Route: 048
  22. DITROPAN [Concomitant]
     Active Substance: OXYBUTYNIN CHLORIDE
     Dosage: 1 MG AM, 1MG PM, 2 MG EVENING
     Route: 048
  23. ROXICODONE [Concomitant]
     Active Substance: OXYCODONE HYDROCHLORIDE
     Dosage: 1 MG AM, 1MG PM, 2 MG EVENING
     Route: 048
  24. EFFEXOR XR [Concomitant]
     Active Substance: VENLAFAXINE HYDROCHLORIDE
     Dosage: 1 MG AM, 1MG PM, 2 MG EVENING
     Route: 048
  25. TECFIDERA [Suspect]
     Active Substance: DIMETHYL FUMARATE
     Indication: MULTIPLE SCLEROSIS
     Route: 065
     Dates: start: 20170224
  26. TECFIDERA [Suspect]
     Active Substance: DIMETHYL FUMARATE
     Dosage: MAINTENANCE DOSE
     Route: 048
     Dates: start: 20170307
  27. MOBIC [Concomitant]
     Active Substance: MELOXICAM
     Dosage: 1 MG AM, 1MG PM, 2 MG EVENING
     Route: 048
  28. ROXICODONE [Concomitant]
     Active Substance: OXYCODONE HYDROCHLORIDE
     Dosage: 1 MG AM, 1MG PM, 2 MG EVENING
     Route: 048
  29. ROXICODONE [Concomitant]
     Active Substance: OXYCODONE HYDROCHLORIDE
     Dosage: 1 MG AM, 1MG PM, 2 MG EVENING
     Route: 048
  30. BACLOFEN. [Concomitant]
     Active Substance: BACLOFEN
     Indication: PRODUCT USED FOR UNKNOWN INDICATION
     Route: 048
  31. MOBIC [Concomitant]
     Active Substance: MELOXICAM
     Indication: PRODUCT USED FOR UNKNOWN INDICATION
     Route: 048
  32. MOBIC [Concomitant]
     Active Substance: MELOXICAM
     Dosage: 1 MG AM, 1MG PM, 2 MG EVENING
     Route: 048
  33. MOBIC [Concomitant]
     Active Substance: MELOXICAM
     Dosage: 1 MG AM, 1MG PM, 2 MG EVENING
     Route: 048
  34. ZOFRAN [Concomitant]
     Active Substance: ONDANSETRON HYDROCHLORIDE
     Dosage: 1 MG AM, 1MG PM, 2 MG EVENING
     Route: 048
  35. DITROPAN [Concomitant]
     Active Substance: OXYBUTYNIN CHLORIDE
     Dosage: 1 MG AM, 1MG PM, 2 MG EVENING
     Route: 048
  36. ROXICODONE [Concomitant]
     Active Substance: OXYCODONE HYDROCHLORIDE
     Dosage: 1 MG AM, 1MG PM, 2 MG EVENING
     Route: 048
  37. HYDROCORTISONE. [Concomitant]
     Active Substance: HYDROCORTISONE
     Indication: PRODUCT USED FOR UNKNOWN INDICATION
     Dosage: IVP
     Route: 065
  38. TYLENOL [Concomitant]
     Active Substance: ACETAMINOPHEN
     Indication: PAIN
     Dosage: 2 TABS, PRN
     Route: 065
  39. VALIUM [Concomitant]
     Active Substance: DIAZEPAM
     Dosage: 1 MG AM, 1MG PM, 2 MG EVENING
     Route: 048
  40. MOBIC [Concomitant]
     Active Substance: MELOXICAM
     Dosage: 1 MG AM, 1MG PM, 2 MG EVENING
     Route: 048
  41. ZOFRAN [Concomitant]
     Active Substance: ONDANSETRON HYDROCHLORIDE
     Indication: PRODUCT USED FOR UNKNOWN INDICATION
     Route: 048
  42. ZOFRAN [Concomitant]
     Active Substance: ONDANSETRON HYDROCHLORIDE
     Dosage: 1 MG AM, 1MG PM, 2 MG EVENING
     Route: 048
  43. DITROPAN [Concomitant]
     Active Substance: OXYBUTYNIN CHLORIDE
     Dosage: 1 MG AM, 1MG PM, 2 MG EVENING
     Route: 048
  44. ROXICODONE [Concomitant]
     Active Substance: OXYCODONE HYDROCHLORIDE
     Dosage: 1 MG AM, 1MG PM, 2 MG EVENING
     Route: 048
  45. EFFEXOR XR [Concomitant]
     Active Substance: VENLAFAXINE HYDROCHLORIDE
     Dosage: 1 MG AM, 1MG PM, 2 MG EVENING
     Route: 048
  46. EFFEXOR XR [Concomitant]
     Active Substance: VENLAFAXINE HYDROCHLORIDE
     Dosage: 1 MG AM, 1MG PM, 2 MG EVENING
     Route: 048
  47. LORATADINE. [Concomitant]
     Active Substance: LORATADINE
     Indication: PRODUCT USED FOR UNKNOWN INDICATION
     Route: 065
  48. BENADRYL [Concomitant]
     Active Substance: DIPHENHYDRAMINE HYDROCHLORIDE
     Indication: PRODUCT USED FOR UNKNOWN INDICATION
     Route: 065
  49. ASCORBIC ACID. [Concomitant]
     Active Substance: ASCORBIC ACID
     Indication: PRODUCT USED FOR UNKNOWN INDICATION
     Route: 048
  50. FLEXERIL [Concomitant]
     Active Substance: CYCLOBENZAPRINE HYDROCHLORIDE
     Indication: PRODUCT USED FOR UNKNOWN INDICATION
     Route: 048
  51. VALIUM [Concomitant]
     Active Substance: DIAZEPAM
     Dosage: 1 MG AM, 1MG PM, 2 MG EVENING
     Route: 048
  52. ZOFRAN [Concomitant]
     Active Substance: ONDANSETRON HYDROCHLORIDE
     Dosage: 1 MG AM, 1MG PM, 2 MG EVENING
     Route: 048
  53. ZOFRAN [Concomitant]
     Active Substance: ONDANSETRON HYDROCHLORIDE
     Dosage: 1 MG AM, 1MG PM, 2 MG EVENING
     Route: 048
  54. EFFEXOR XR [Concomitant]
     Active Substance: VENLAFAXINE HYDROCHLORIDE
     Indication: PRODUCT USED FOR UNKNOWN INDICATION
     Route: 048
  55. EFFEXOR XR [Concomitant]
     Active Substance: VENLAFAXINE HYDROCHLORIDE
     Route: 048

REACTIONS (4)
  - Hip fracture [Recovered/Resolved]
  - Multiple sclerosis relapse [Recovered/Resolved]
  - Fall [Recovered/Resolved]
  - Joint swelling [Unknown]

NARRATIVE: CASE EVENT DATE: 20170320
